FAERS Safety Report 6307361-7 (Version None)
Quarter: 2009Q3

REPORT INFORMATION
  Report Type: 
  Country: None (occurrence: None)
  Receive Date: 20090813
  Receipt Date: 20090803
  Transmission Date: 20100115
  Serious: Yes (Other)
  Sender: FDA-Public Use
  Company Number: US-JNJFOC-20090801308

PATIENT
  Age: 88 Year
  Sex: Male
  Weight: 74.39 kg

DRUGS (10)
  1. TYLENOL (CAPLET) [Suspect]
     Route: 048
  2. TYLENOL (CAPLET) [Suspect]
     Indication: PYREXIA
     Route: 048
  3. SINEMET [Concomitant]
     Dosage: 50/200 THREE TIMES DAILY
  4. SINEMET [Concomitant]
     Indication: PARKINSON'S DISEASE
     Dosage: 25/100 TWICE DAILY
  5. ARICEPT [Concomitant]
     Indication: DEMENTIA
  6. DIGOXIN [Concomitant]
     Indication: CARDIOMYOPATHY
  7. PROVIGIL [Concomitant]
     Indication: SLEEP APNOEA SYNDROME
  8. MUCINEX [Concomitant]
     Indication: CHRONIC OBSTRUCTIVE PULMONARY DISEASE
     Dosage: 400MG, SEVERAL DAILY
  9. COLACE [Concomitant]
     Indication: ABNORMAL FAECES
  10. MELATONIN [Concomitant]
     Indication: INSOMNIA

REACTIONS (2)
  - ASPIRATION [None]
  - CHOKING [None]
